FAERS Safety Report 8109481-3 (Version None)
Quarter: 2012Q1

REPORT INFORMATION
  Report Type: 
  Country: None (occurrence: None)
  Receive Date: 20120202
  Receipt Date: 20120130
  Transmission Date: 20120608
  Serious: Yes (Other)
  Sender: FDA-Public Use
  Company Number: FR-ABBOTT-12P-056-0894029-00

PATIENT
  Age: 40 Year
  Sex: Male

DRUGS (5)
  1. CLONAZEPAM [Concomitant]
     Indication: ALCOHOL WITHDRAWAL SYNDROME
     Dates: start: 20090527
  2. CYAMEMAZINE [Concomitant]
     Indication: ALCOHOL WITHDRAWAL SYNDROME
     Dates: start: 20090527
  3. TROPATEPINE [Concomitant]
     Indication: ALCOHOL WITHDRAWAL SYNDROME
     Dates: start: 20090527
  4. DEPAKENE [Suspect]
     Indication: ABSTAINS FROM ALCOHOL
     Dosage: DAILY
     Route: 048
     Dates: start: 20090527, end: 20090810
  5. VITAMIN B1 AND B6 [Concomitant]
     Indication: ALCOHOL WITHDRAWAL SYNDROME
     Dates: start: 20090527

REACTIONS (5)
  - PLEURAL DISORDER [None]
  - LUNG DISORDER [None]
  - PLEURAL EFFUSION [None]
  - EOSINOPHILIA [None]
  - ALVEOLITIS [None]
